FAERS Safety Report 4759660-8 (Version None)
Quarter: 2005Q3

REPORT INFORMATION
  Report Type: 
  Country: None (occurrence: None)
  Receive Date: 20050831
  Receipt Date: 20050816
  Transmission Date: 20060218
  Serious: Yes (Hospitalization)
  Sender: FDA-Public Use
  Company Number: A-US2005-09926

PATIENT
  Age: 90 Year
  Sex: Male

DRUGS (15)
  1. TRACLEER [Suspect]
     Indication: PULMONARY HYPERTENSION
     Dosage: 62.5 MG, BID, ORAL
     Route: 048
     Dates: start: 20050418, end: 20050502
  2. AMIODARONE HCL [Concomitant]
  3. PRILOSEC [Concomitant]
  4. POTASSIUM CHLORIDE [Concomitant]
  5. LEVOXYL [Concomitant]
  6. CARDURA [Concomitant]
  7. ACETYLSALICYLIC ACID SRT [Concomitant]
  8. NITROGLYCERIN [Concomitant]
  9. MULTIPLE VITAMINS (VITAMIN B NOS, TOCOPHEROL, RETINOL, FOLIC ACID, ERG [Concomitant]
  10. DEMADEX [Concomitant]
  11. FEMEX (NAPROXEN SODIUM) [Concomitant]
  12. GLUCOSAMINE (GLUCOSAMINE) [Concomitant]
  13. VITAMIN B12 [Concomitant]
  14. ARANSEP [Concomitant]
  15. LACTOBACILLUS ACIDOPHILUS (LACTOBACILLUS ACIDOPHILUS) [Concomitant]

REACTIONS (7)
  - ATRIAL FIBRILLATION [None]
  - DYSPNOEA [None]
  - EXERCISE TOLERANCE DECREASED [None]
  - LOW CARDIAC OUTPUT SYNDROME [None]
  - OEDEMA PERIPHERAL [None]
  - ORTHOPNOEA [None]
  - RENAL IMPAIRMENT [None]
